FAERS Safety Report 9222304 (Version 2)
Quarter: 2014Q1

REPORT INFORMATION
  Report Type: Spontaneous
  Country: US (occurrence: None)
  Receive Date: 20120910
  Receipt Date: 20130311
  Transmission Date: 20141002
  Serious: No
  Sender: FDA-Public Use
  Company Number: 1205USA02380

PATIENT
  Sex: Female

DRUGS (7)
  1. ZIOPTAN [Suspect]
     Indication: GLAUCOMA
     Dosage: GTT OU, OPHTHALMIC
     Route: 047
     Dates: start: 2012
  2. AZOPT (BRINZOLAMIDE) (1 PERCENT) (BRINZOLAMIDE) [Concomitant]
  3. COMPOSITION UNSPECIFIED [Concomitant]
  4. ADVIAR (FLUTICASONE PROPIONATE, SALMETEROL XINAFOATE) [Concomitant]
  5. MUCINEX (GUAIFENESIN) [Concomitant]
  6. PLAVIX (CLOPIDOGREL BISULFATE) (CLOPIDOGREL BISULFATE) [Concomitant]
  7. GLIPIZIDE [Concomitant]

REACTIONS (1)
  - Lip swelling [None]
